FAERS Safety Report 9800438 (Version 1)
Quarter: 2014Q1

REPORT INFORMATION
  Report Type: Report from Study
  Country: US (occurrence: US)
  Receive Date: 20140107
  Receipt Date: 20140107
  Transmission Date: 20141002
  Serious: Yes (Other)
  Sender: FDA-Public Use
  Company Number: US-ROCHE-1327697

PATIENT
  Age: 50 Year
  Sex: Female

DRUGS (49)
  1. LUCENTIS [Suspect]
     Indication: CHOROIDAL NEOVASCULARISATION
     Dosage: RIGHT EYE
     Route: 050
     Dates: start: 20110620
  2. LUCENTIS [Suspect]
     Dosage: RIGHT EYE
     Route: 050
     Dates: start: 20110518
  3. LUCENTIS [Suspect]
     Dosage: RIGHT EYE
     Route: 050
     Dates: start: 20110420
  4. LUCENTIS [Suspect]
     Dosage: RIGHT EYE
     Route: 050
     Dates: start: 20110323
  5. LUCENTIS [Suspect]
     Dosage: RIGHT EYE
     Route: 050
     Dates: start: 20110223
  6. LUCENTIS [Suspect]
     Dosage: RIGHT EYE
     Route: 050
     Dates: start: 20110126
  7. LUCENTIS [Suspect]
     Dosage: RIGHT EYE
     Route: 050
     Dates: start: 20101229
  8. LUCENTIS [Suspect]
     Dosage: RUGHT EYE
     Route: 050
     Dates: start: 20101203
  9. LUCENTIS [Suspect]
     Dosage: RIGHT EYE
     Route: 050
     Dates: start: 20101105
  10. LUCENTIS [Suspect]
     Dosage: RIGHT EYE
     Route: 050
     Dates: start: 20100930
  11. LUCENTIS [Suspect]
     Dosage: RIGHT EYE
     Route: 050
     Dates: start: 20100827
  12. LUCENTIS [Suspect]
     Dosage: RIGHT EYE
     Route: 050
     Dates: start: 20100709
  13. LUCENTIS [Suspect]
     Dosage: RIGHT EYE
     Route: 050
     Dates: start: 20100521
  14. LUCENTIS [Suspect]
     Dosage: RIGHT EYE
     Route: 050
     Dates: start: 20100409
  15. LUCENTIS [Suspect]
     Dosage: RIGHT EYE
     Route: 050
     Dates: start: 20100127
  16. LUCENTIS [Suspect]
     Dosage: RIGHT EYE
     Route: 050
     Dates: start: 20091221
  17. LUCENTIS [Suspect]
     Dosage: RIGHT EYE
     Route: 050
     Dates: start: 20091120
  18. LUCENTIS [Suspect]
     Dosage: RIGHT EYE
     Route: 050
     Dates: start: 20110718
  19. LUCENTIS [Suspect]
     Dosage: RIGHT EYE
     Route: 050
     Dates: start: 20110815
  20. LUCENTIS [Suspect]
     Dosage: RIGHT EYE
     Route: 050
     Dates: start: 20110912
  21. LUCENTIS [Suspect]
     Dosage: RIGHT EYE
     Route: 050
     Dates: start: 20111010
  22. LUCENTIS [Suspect]
     Dosage: RIGHT EYE
     Route: 050
     Dates: start: 20111107
  23. LUCENTIS [Suspect]
     Dosage: RIGHT EYE
     Route: 050
     Dates: start: 20111230
  24. LUCENTIS [Suspect]
     Dosage: RIGHT EYE
     Route: 050
     Dates: start: 20111230
  25. LUCENTIS [Suspect]
     Dosage: RIGHT EYE
     Route: 050
     Dates: start: 20120127
  26. LUCENTIS [Suspect]
     Dosage: RIGHT EYE
     Route: 050
     Dates: start: 20120307
  27. LUCENTIS [Suspect]
     Dosage: RIGHT EYE
     Route: 050
     Dates: start: 20120404
  28. LUCENTIS [Suspect]
     Dosage: RIGHT EYE
     Route: 050
     Dates: start: 20120510
  29. LUCENTIS [Suspect]
     Dosage: RIGHT EYE
     Route: 050
     Dates: start: 20120613
  30. LUCENTIS [Suspect]
     Dosage: RIGHT EYE
     Route: 050
     Dates: start: 20120711
  31. LUCENTIS [Suspect]
     Dosage: RIGHT EYE
     Route: 050
     Dates: start: 20120808
  32. LUCENTIS [Suspect]
     Dosage: RIGHT EYE
     Route: 050
     Dates: start: 20120907
  33. LUCENTIS [Suspect]
     Dosage: RIGHT EYE
     Route: 050
     Dates: start: 20121005
  34. LUCENTIS [Suspect]
     Dosage: RIGHT EYE
     Route: 050
     Dates: start: 20121102
  35. LUCENTIS [Suspect]
     Dosage: RIGHT EYE
     Route: 050
     Dates: start: 20121130
  36. LUCENTIS [Suspect]
     Dosage: RIGHT EYE
     Route: 050
     Dates: start: 20121205
  37. LUCENTIS [Suspect]
     Dosage: RIGHT EYE
     Route: 050
     Dates: start: 20121228
  38. LUCENTIS [Suspect]
     Dosage: RIGHT EYE
     Route: 050
     Dates: start: 20130125
  39. LUCENTIS [Suspect]
     Dosage: RIGHT EYE
     Route: 050
     Dates: start: 20130228
  40. LUCENTIS [Suspect]
     Dosage: RIGHT EYE
     Route: 050
     Dates: start: 20130403
  41. LUCENTIS [Suspect]
     Dosage: RIGHT EYE
     Route: 050
     Dates: start: 20130515
  42. BEVACIZUMAB [Suspect]
     Indication: CHOROIDAL NEOVASCULARISATION
     Dosage: RIGHT EYE
     Route: 065
     Dates: start: 20091015
  43. BEVACIZUMAB [Suspect]
     Dosage: RIGHT EYE
     Route: 065
     Dates: start: 20090807
  44. BEVACIZUMAB [Suspect]
     Dosage: RIGHT EYE
     Route: 065
     Dates: start: 20090709
  45. BEVACIZUMAB [Suspect]
     Dosage: RIGHT EYE
     Route: 065
     Dates: start: 20090612
  46. PREVACID [Concomitant]
     Route: 065
  47. TROPICAMIDE [Concomitant]
     Route: 065
  48. PHENYLEPHRINE [Concomitant]
     Route: 065
  49. LASIX [Concomitant]
     Route: 065
     Dates: start: 20070427

REACTIONS (20)
  - Choroiditis [Unknown]
  - Macular oedema [Unknown]
  - Drug ineffective [Unknown]
  - Incorrect dose administered [Unknown]
  - Choroidal neovascularisation [Recovered/Resolved]
  - Vitreous floaters [Recovered/Resolved]
  - Choroidal neovascularisation [Unknown]
  - Macular cyst [Unknown]
  - Vision blurred [Unknown]
  - Cataract [Unknown]
  - Vitreous detachment [Unknown]
  - Ocular discomfort [Unknown]
  - Dry eye [Unknown]
  - Macular scar [Unknown]
  - Detachment of retinal pigment epithelium [Unknown]
  - Macular fibrosis [Unknown]
  - Vitreous adhesions [Unknown]
  - Nodule [Unknown]
  - Macular opacity [Unknown]
  - Off label use [Unknown]
